FAERS Safety Report 6707287-0 (Version None)
Quarter: 2010Q2

REPORT INFORMATION
  Report Type: 
  Country: None (occurrence: None)
  Receive Date: 20100503
  Receipt Date: 20090921
  Transmission Date: 20101027
  Serious: No
  Sender: FDA-Public Use
  Company Number: US-ASTRAZENECA-2009SE14335

PATIENT
  Age: 86 Year
  Sex: Male

DRUGS (8)
  1. NEXIUM [Suspect]
     Indication: GASTROOESOPHAGEAL REFLUX DISEASE
     Route: 048
     Dates: start: 20020101, end: 20090901
  2. CALCIUM [Concomitant]
  3. HYTRIN [Concomitant]
  4. PRAVACHOL [Concomitant]
  5. POTASSIUM [Concomitant]
  6. MULTI-VITAMIN [Concomitant]
  7. TOPROL-XL [Concomitant]
  8. HYGROTON [Concomitant]

REACTIONS (2)
  - OSTEOPENIA [None]
  - OSTEOPOROSIS [None]
